FAERS Safety Report 24733448 (Version 1)
Quarter: 2024Q4

REPORT INFORMATION
  Report Type: Report from Study
  Country: US (occurrence: US)
  Receive Date: 20241213
  Receipt Date: 20241213
  Transmission Date: 20250115
  Serious: Yes (Hospitalization, Other)
  Sender: ALEXION PHARMACEUTICALS
  Company Number: US-ALXN-202412USA006103US

PATIENT

DRUGS (4)
  1. STRENSIQ [Suspect]
     Active Substance: ASFOTASE ALFA
     Dosage: UNK
     Route: 065
  2. STRENSIQ [Suspect]
     Active Substance: ASFOTASE ALFA
     Dosage: UNK
     Route: 065
  3. STRENSIQ [Suspect]
     Active Substance: ASFOTASE ALFA
     Dosage: UNK
     Route: 065
  4. STRENSIQ [Suspect]
     Active Substance: ASFOTASE ALFA
     Dosage: UNK
     Route: 065

REACTIONS (9)
  - Suicidal ideation [Unknown]
  - Temperature intolerance [Unknown]
  - Insomnia [Unknown]
  - Tenderness [Unknown]
  - Sinus congestion [Unknown]
  - Blood glucose increased [Unknown]
  - Blood thyroid stimulating hormone decreased [Unknown]
  - Blood pressure systolic increased [Unknown]
  - Intentional overdose [Unknown]
